FAERS Safety Report 9737120 (Version 1)
Quarter: 2013Q4

REPORT INFORMATION
  Report Type: Spontaneous
  Country: US (occurrence: US)
  Receive Date: 20131206
  Receipt Date: 20131206
  Transmission Date: 20140711
  Serious: Yes (Death, Hospitalization)
  Sender: FDA-Public Use
  Company Number: US-SA-2013SA125271

PATIENT
  Age: 62 Year
  Sex: Male

DRUGS (13)
  1. RASBURICASE [Suspect]
     Indication: BLOOD URIC ACID INCREASED
     Route: 042
  2. RASBURICASE [Suspect]
     Indication: BLOOD URIC ACID INCREASED
     Route: 065
  3. LENALIDOMIDE [Concomitant]
     Indication: BACK PAIN
  4. LENALIDOMIDE [Concomitant]
     Indication: BACK PAIN
  5. PREDNISONE [Concomitant]
     Indication: BACK PAIN
  6. PREDNISONE [Concomitant]
     Indication: BACK PAIN
  7. OXYCODONE [Concomitant]
     Indication: BACK PAIN
  8. AMLODIPINE [Concomitant]
  9. ATORVASTATIN [Concomitant]
  10. METOPROLOL SUCCINATE [Concomitant]
  11. OMEPRAZOLE [Concomitant]
  12. HYDROMORPHONE [Concomitant]
     Indication: PAIN
     Dosage: EVERY 4 TO 6 HOURS
  13. ONDANSETRON [Concomitant]
     Indication: NAUSEA
     Dosage: 3 TIMES DAILY AS NEEDED

REACTIONS (5)
  - Methaemoglobinaemia [Fatal]
  - Hypoxia [Fatal]
  - Tachypnoea [Fatal]
  - Somnolence [Fatal]
  - Haemolytic anaemia [Fatal]
